FAERS Safety Report 16370117 (Version 2)
Quarter: 2019Q3

REPORT INFORMATION
  Report Type: Spontaneous
  Country: FR (occurrence: FR)
  Receive Date: 20190530
  Receipt Date: 20190718
  Transmission Date: 20191004
  Serious: Yes (Hospitalization)
  Sender: FDA-Public Use
  Company Number: FR-SA-2019SA146296

PATIENT
  Age: 54 Year
  Sex: Male

DRUGS (15)
  1. JOSAMYCIN [Suspect]
     Active Substance: JOSAMYCIN
     Indication: EAR INFECTION
     Dosage: 2000 MG, QD
     Route: 048
     Dates: start: 20190423, end: 20190429
  2. ATORVASTATIN [Suspect]
     Active Substance: ATORVASTATIN
     Indication: CARDIOVASCULAR EVENT PROPHYLAXIS
     Dosage: 20 MG, QD
     Route: 048
     Dates: start: 201602
  3. ESOMEPRAZOLE. [Suspect]
     Active Substance: ESOMEPRAZOLE MAGNESIUM
     Indication: GASTROOESOPHAGEAL REFLUX DISEASE
     Dosage: 40 MG, QD
     Route: 048
     Dates: start: 201602
  4. BETAMETHASONE. [Suspect]
     Active Substance: BETAMETHASONE
     Indication: PHARYNGITIS
  5. OXOMEMAZINE [Suspect]
     Active Substance: OXOMEMAZINE
     Indication: COUGH
     Dosage: 1 CASE X 3 TO 4 / DAY
     Route: 048
     Dates: start: 20190423, end: 20190428
  6. CORGARD [Suspect]
     Active Substance: NADOLOL
     Indication: HYPERTROPHIC CARDIOMYOPATHY
     Dosage: 160 MG, QD
     Route: 048
     Dates: start: 201706
  7. BETAMETHASONE. [Suspect]
     Active Substance: BETAMETHASONE
     Indication: EAR INFECTION
     Dosage: 3 DF, QD
     Route: 048
     Dates: start: 20190423, end: 20190427
  8. FUROSEMIDE. [Suspect]
     Active Substance: FUROSEMIDE
     Indication: OEDEMA DUE TO CARDIAC DISEASE
     Dosage: 40 MG, QD
     Route: 048
     Dates: start: 201602
  9. JOSAMYCIN [Suspect]
     Active Substance: JOSAMYCIN
     Indication: RHINITIS
  10. ZOLPIDEM TARTRATE. [Suspect]
     Active Substance: ZOLPIDEM TARTRATE
     Indication: INSOMNIA
     Dosage: OCCASIONALLY
     Route: 048
     Dates: start: 20180223
  11. DESLORATADINE. [Suspect]
     Active Substance: DESLORATADINE
     Indication: RHINITIS ALLERGIC
     Dosage: 5 MG, QD
     Route: 048
     Dates: start: 201602
  12. BETAMETHASONE. [Suspect]
     Active Substance: BETAMETHASONE
     Indication: RHINITIS
  13. JOSAMYCIN [Suspect]
     Active Substance: JOSAMYCIN
     Indication: PHARYNGITIS
  14. ELIQUIS [Suspect]
     Active Substance: APIXABAN
     Indication: CEREBROVASCULAR ACCIDENT PROPHYLAXIS
     Dosage: 10 MG, QD
     Route: 048
     Dates: start: 201602
  15. JANUMET [Suspect]
     Active Substance: METFORMIN HYDROCHLORIDE\SITAGLIPTIN PHOSPHATE
     Indication: TYPE 2 DIABETES MELLITUS
     Dosage: 2 DF, QD
     Route: 048
     Dates: start: 201602, end: 20190504

REACTIONS (1)
  - Lipase increased [Recovering/Resolving]

NARRATIVE: CASE EVENT DATE: 20190504
